FAERS Safety Report 21138820 (Version 1)
Quarter: 2022Q3

REPORT INFORMATION
  Report Type: Spontaneous
  Country: US (occurrence: US)
  Receive Date: 20220727
  Receipt Date: 20220727
  Transmission Date: 20221027
  Serious: Yes (Other)
  Sender: FDA-Public Use
  Company Number: US-SA-SAC00000000120994

PATIENT

DRUGS (34)
  1. ALDURAZYME [Suspect]
     Active Substance: LARONIDASE
     Indication: Mucopolysaccharidosis
     Dosage: 23.2, QW
     Route: 042
     Dates: start: 20060906
  2. HEPARIN [Concomitant]
     Active Substance: HEPARIN SODIUM
     Dosage: UNK
  3. SODIUM CHLORIDE [Concomitant]
     Active Substance: SODIUM CHLORIDE
     Dosage: FLUSH SYRINGE
  4. MORPHINE SULFATE [Concomitant]
     Active Substance: MORPHINE SULFATE
  5. VITAMIN D3 [Concomitant]
     Active Substance: CHOLECALCIFEROL
  6. EPINEPHRINE [Concomitant]
     Active Substance: EPINEPHRINE
     Dosage: AUTO INJECTOR
  7. VICKS NYQUIL [Concomitant]
     Active Substance: ACETAMINOPHEN\DEXTROMETHORPHAN HYDROBROMIDE\DOXYLAMINE SUCCINATE
     Dosage: UNK
  8. BENEFIBER [WHEAT DEXTRIN] [Concomitant]
     Dosage: UNK
  9. SINGULAIR [Concomitant]
     Active Substance: MONTELUKAST SODIUM
     Dosage: CHEW
  10. OXYCODONE AND ACETAMINOPHEN [Concomitant]
     Active Substance: ACETAMINOPHEN\OXYCODONE HYDROCHLORIDE
  11. BACITRACIN [Concomitant]
     Active Substance: BACITRACIN
  12. BACLOFEN [Concomitant]
     Active Substance: BACLOFEN
  13. DIPHENDRYL [Concomitant]
  14. GENTEAL NIGHT-TIME PM [Concomitant]
     Active Substance: MINERAL OIL\PETROLATUM
  15. LIDOCAINE [Concomitant]
     Active Substance: LIDOCAINE
  16. HEPARIN LOCK FLUSH [Concomitant]
     Active Substance: HEPARIN SODIUM
  17. DELSYM [Concomitant]
     Active Substance: DEXTROMETHORPHAN
  18. IBUPROFEN [Concomitant]
     Active Substance: IBUPROFEN
  19. PREDNISOLONE ACETATE [Concomitant]
     Active Substance: PREDNISOLONE ACETATE
     Dosage: DROPS
  20. ALBUTEROL SULFATE [Concomitant]
     Active Substance: ALBUTEROL SULFATE
     Dosage: INHALER
  21. SOLIFENACIN SUCCINATE [Concomitant]
     Active Substance: SOLIFENACIN SUCCINATE
  22. SYSTANE BALANCE [Concomitant]
     Active Substance: PROPYLENE GLYCOL
  23. XARELTO [Concomitant]
     Active Substance: RIVAROXABAN
  24. LIDOCAINE [Concomitant]
     Active Substance: LIDOCAINE
  25. MODERNA COVID-19 VACCINE [Concomitant]
     Active Substance: ELASOMERAN
     Indication: Immunisation
  26. DICLOFENAC [Concomitant]
     Active Substance: DICLOFENAC
  27. BIOFREEZE [Concomitant]
     Active Substance: MENTHOL
  28. FERROUS SULFATE [Concomitant]
     Active Substance: FERROUS SULFATE
  29. BUPRENORPHINE [Concomitant]
     Active Substance: BUPRENORPHINE
  30. TRAZODONE HCL [Concomitant]
     Active Substance: TRAZODONE HYDROCHLORIDE
  31. SODIUM CHLORIDE [Concomitant]
     Active Substance: SODIUM CHLORIDE
  32. ACETAMINOPHEN [Concomitant]
     Active Substance: ACETAMINOPHEN
     Dosage: ODT
  33. VITAMINS NOS [Concomitant]
     Active Substance: VITAMINS
     Dosage: UNK
  34. OXYGEN [Concomitant]
     Active Substance: OXYGEN

REACTIONS (1)
  - Syncope [Unknown]
